FAERS Safety Report 15130574 (Version 1)
Quarter: 2018Q3

REPORT INFORMATION
  Report Type: Spontaneous
  Country: AU (occurrence: AU)
  Receive Date: 20180711
  Receipt Date: 20180711
  Transmission Date: 20181010
  Serious: Yes (Other)
  Sender: FDA-Public Use
  Company Number: AU-PFIZER INC-2018272232

PATIENT
  Sex: Female

DRUGS (1)
  1. PREMIA LOW CONTINUOUS [Suspect]
     Active Substance: ESTROGENS, CONJUGATED\MEDROXYPROGESTERONE ACETATE
     Dosage: 5 MG, UNK

REACTIONS (1)
  - Neoplasm malignant [Unknown]
